FAERS Safety Report 9830168 (Version 1)
Quarter: 2014Q1

REPORT INFORMATION
  Report Type: Spontaneous
  Country: JP (occurrence: JP)
  Receive Date: 20140120
  Receipt Date: 20140120
  Transmission Date: 20141002
  Serious: Yes (Other)
  Sender: FDA-Public Use
  Company Number: CHPA2014JP000961

PATIENT
  Sex: Male

DRUGS (1)
  1. NICOTINELL TTS [Suspect]
     Indication: SMOKING CESSATION THERAPY
     Dosage: 52.5 MG, QD
     Route: 062
     Dates: start: 2013, end: 2013

REACTIONS (4)
  - Cough [Unknown]
  - Pain [Unknown]
  - Arthralgia [Unknown]
  - Urticaria [Recovered/Resolved]
